FAERS Safety Report 9182659 (Version 1)
Quarter: 2012Q4

REPORT INFORMATION
  Report Type: 
  Country: GB (occurrence: GB)
  Receive Date: 20121030
  Receipt Date: 20121030
  Transmission Date: 20130627
  Serious: Yes (Other)
  Sender: FDA-Public Use
  Company Number: GB-MERCK-1210GBR012158

PATIENT
  Age: 67 Year
  Sex: Male
  Weight: 147.8 kg

DRUGS (8)
  1. EZETROL [Suspect]
     Dosage: UNK
     Route: 048
  2. ASPIRIN [Concomitant]
     Dosage: UNK
     Dates: start: 20120910, end: 20121008
  3. ACETAMINOPHEN (+) DIHYDROCODEINE BITARTRATE [Concomitant]
     Dosage: UNK
     Dates: start: 20120709, end: 20120806
  4. EZETIMIBE [Concomitant]
     Dosage: UNK
     Dates: start: 20120709
  5. LUMIGAN [Concomitant]
     Dosage: UNK
     Dates: start: 20120709
  6. NAPROXEN [Concomitant]
     Dosage: UNK
     Dates: start: 20120709
  7. REVAXIS [Concomitant]
     Indication: PROPHYLAXIS
     Dosage: UNK
     Dates: start: 20121008, end: 20121008
  8. VALSARTAN [Concomitant]
     Dosage: UNK
     Dates: start: 20120709

REACTIONS (3)
  - Blood alkaline phosphatase increased [Unknown]
  - Aspartate aminotransferase increased [Unknown]
  - Liver function test abnormal [Unknown]
